FAERS Safety Report 6297275-3 (Version None)
Quarter: 2009Q3

REPORT INFORMATION
  Report Type: 
  Country: None (occurrence: None)
  Receive Date: 20090805
  Receipt Date: 20090729
  Transmission Date: 20100115
  Serious: Yes (Hospitalization, Other)
  Sender: FDA-Public Use
  Company Number: US-WYE-H09772009

PATIENT
  Sex: Male
  Weight: 69 kg

DRUGS (7)
  1. TEMSIROLIMUS [Suspect]
     Indication: PROSTATE CANCER
     Route: 042
     Dates: start: 20090519, end: 20090609
  2. ZOFRAN [Concomitant]
     Dosage: 8 MG; FREQUENCY NOT PROVIDED
     Route: 065
     Dates: start: 20090519
  3. LISINOPRIL [Concomitant]
     Dosage: 20 MG; FREQUENCY NOT PROVIDED
     Route: 048
     Dates: start: 20040203
  4. NORVASC [Concomitant]
     Dosage: 2.5 MG; FREQUENCY NOT PROVIDED
     Route: 065
     Dates: start: 20090519
  5. PRILOSEC [Concomitant]
     Dosage: 20 MG; FREQUENCY NOT PROVIDED
     Route: 065
     Dates: start: 20040203
  6. BEVACIZUMAB [Suspect]
     Indication: PROSTATE CANCER
     Route: 042
     Dates: start: 20090526, end: 20090609
  7. ROXICET [Concomitant]
     Dosage: 5 MG-325MG; FREQUENCY NOT PROVIDED
     Route: 065
     Dates: start: 20090519

REACTIONS (6)
  - ANAEMIA [None]
  - CONDITION AGGRAVATED [None]
  - CONSTIPATION [None]
  - DEHYDRATION [None]
  - DIARRHOEA [None]
  - INFECTION [None]
